FAERS Safety Report 8158901-7 (Version None)
Quarter: 2012Q1

REPORT INFORMATION
  Report Type: 
  Country: None (occurrence: None)
  Receive Date: 20120223
  Receipt Date: 20120213
  Transmission Date: 20120608
  Serious: Yes (Hospitalization)
  Sender: FDA-Public Use
  Company Number: US-BRISTOL-MYERS SQUIBB COMPANY-15913395

PATIENT
  Age: 73 Year
  Sex: Female
  Weight: 59 kg

DRUGS (3)
  1. COUMADIN [Suspect]
     Indication: ATRIAL FIBRILLATION
     Dosage: ALSO TAKEN 2 MG;2 TABS PER DAY;2.5MG FOR 6DAYS;4MG IS ALSO TAKEN
     Route: 048
     Dates: start: 20070501
  2. COUMADIN [Suspect]
     Indication: HEART RATE IRREGULAR
     Dosage: ALSO TAKEN 2 MG;2 TABS PER DAY;2.5MG FOR 6DAYS;4MG IS ALSO TAKEN
     Route: 048
     Dates: start: 20070501
  3. INSPRA [Concomitant]

REACTIONS (8)
  - STOMATITIS [None]
  - DYSGEUSIA [None]
  - ARTHRITIS [None]
  - SWOLLEN TONGUE [None]
  - DIVERTICULITIS [None]
  - ORAL PAIN [None]
  - PARAESTHESIA [None]
  - INTERNATIONAL NORMALISED RATIO DECREASED [None]
